FAERS Safety Report 12787989 (Version 1)
Quarter: 2016Q3

REPORT INFORMATION
  Report Type: Spontaneous
  Country: CH (occurrence: CH)
  Receive Date: 20160928
  Receipt Date: 20160928
  Transmission Date: 20161109
  Serious: Yes (Hospitalization)
  Sender: FDA-Public Use
  Company Number: CH-SA-2016SA175103

PATIENT
  Age: 50 Year
  Sex: Male
  Weight: 115 kg

DRUGS (8)
  1. STILNOX CR [Suspect]
     Active Substance: ZOLPIDEM TARTRATE
     Route: 048
     Dates: end: 201607
  2. XANAX [Suspect]
     Active Substance: ALPRAZOLAM
     Route: 048
  3. QUILONORM RETARD [Concomitant]
     Active Substance: LITHIUM CARBONATE
     Route: 048
  4. SIMVASTATIN. [Concomitant]
     Active Substance: SIMVASTATIN
     Route: 048
  5. ZYPREXA [Suspect]
     Active Substance: OLANZAPINE
     Route: 048
  6. SERESTA [Suspect]
     Active Substance: OXAZEPAM
     Route: 048
  7. SERESTA [Suspect]
     Active Substance: OXAZEPAM
     Route: 048
  8. KETALGIN NOS [Suspect]
     Active Substance: KETOROLAC TROMETHAMINE OR METHADONE
     Route: 048
     Dates: start: 201511

REACTIONS (5)
  - Hyperprolactinaemia [Unknown]
  - Psychomotor retardation [Recovered/Resolved]
  - Fall [Recovered/Resolved]
  - Glucocorticoid deficiency [Recovered/Resolved]
  - Hypogonadism [Unknown]

NARRATIVE: CASE EVENT DATE: 20160727
